FAERS Safety Report 8182890-2 (Version None)
Quarter: 2012Q1

REPORT INFORMATION
  Report Type: 
  Country: None (occurrence: None)
  Receive Date: 20120305
  Receipt Date: 20120228
  Transmission Date: 20120608
  Serious: Yes (Death)
  Sender: FDA-Public Use
  Company Number: US-CELGENEUS-163-21880-12023212

PATIENT
  Sex: Female

DRUGS (9)
  1. CILOSTAZOL [Concomitant]
     Route: 065
  2. DEXAMETHASONE [Concomitant]
     Route: 065
  3. METFORMIN HCL [Concomitant]
     Route: 065
  4. COLACE [Concomitant]
     Route: 065
  5. HYDROCODONE BITARTRATE AND ACETAMINOPHEN [Concomitant]
     Route: 065
  6. CLONIDINE HCL [Concomitant]
     Route: 065
  7. CYCLOBENZAPRINE HCL [Concomitant]
     Route: 065
  8. REVLIMID [Suspect]
     Dosage: 10 MILLIGRAM
     Route: 048
     Dates: start: 20120201, end: 20120201
  9. METOPROLOL SUCCINATE [Concomitant]
     Route: 065

REACTIONS (1)
  - DEATH [None]
